FAERS Safety Report 10254553 (Version 1)
Quarter: 2014Q2

REPORT INFORMATION
  Report Type: Spontaneous
  Country: US (occurrence: None)
  Receive Date: 20140620
  Receipt Date: 20140620
  Transmission Date: 20141212
  Serious: No
  Sender: FDA-Public Use
  Company Number: None

PATIENT
  Age: 57 Year
  Sex: Male
  Weight: 148.2 kg

DRUGS (1)
  1. TRAZODONE [Suspect]
     Route: 048
     Dates: start: 20140329, end: 20140401

REACTIONS (2)
  - Visual impairment [None]
  - Visual impairment [None]
